FAERS Safety Report 9704948 (Version 3)
Quarter: 2013Q4

REPORT INFORMATION
  Report Type: Report from Study
  Country: DE (occurrence: DE)
  Receive Date: 20131122
  Receipt Date: 20131208
  Transmission Date: 20140711
  Serious: Yes (Hospitalization)
  Sender: FDA-Public Use
  Company Number: DE-ABBVIE-13P-062-1169457-00

PATIENT
  Age: 58 Year
  Sex: Female

DRUGS (10)
  1. HUMIRA [Suspect]
     Indication: RHEUMATOID ARTHRITIS
     Route: 058
     Dates: start: 20080203, end: 200910
  2. HUMIRA [Suspect]
     Route: 058
     Dates: start: 201003, end: 20130904
  3. HUMIRA [Suspect]
     Route: 058
     Dates: start: 20131124
  4. ARAVA [Concomitant]
     Indication: PRODUCT USED FOR UNKNOWN INDICATION
  5. CORTISON [Concomitant]
     Indication: PRODUCT USED FOR UNKNOWN INDICATION
  6. ANALGESICS [Concomitant]
     Indication: PRODUCT USED FOR UNKNOWN INDICATION
  7. VIT D [Concomitant]
     Indication: PRODUCT USED FOR UNKNOWN INDICATION
  8. CALCIUM [Concomitant]
     Indication: PRODUCT USED FOR UNKNOWN INDICATION
  9. EYE DROPS [Concomitant]
     Indication: PRODUCT USED FOR UNKNOWN INDICATION
  10. DUROGESIC [Concomitant]
     Indication: PRODUCT USED FOR UNKNOWN INDICATION

REACTIONS (3)
  - Foot operation [Unknown]
  - Impaired healing [Unknown]
  - Rheumatoid arthritis [Not Recovered/Not Resolved]
